FAERS Safety Report 23375672 (Version 2)
Quarter: 2024Q1

REPORT INFORMATION
  Report Type: Report from Study
  Country: BG (occurrence: BG)
  Receive Date: 20240107
  Receipt Date: 20240213
  Transmission Date: 20240410
  Serious: Yes (Other)
  Sender: FDA-Public Use
  Company Number: BG-ABBVIE-5571777

PATIENT
  Age: 44 Year
  Sex: Male

DRUGS (1)
  1. SKYRIZI [Suspect]
     Active Substance: RISANKIZUMAB-RZAA
     Indication: Psoriasis
     Dosage: FREQUENCY TEXT: 150 MG EVERY 84 DAYS
     Route: 058
     Dates: start: 202101

REACTIONS (2)
  - Cerebrovascular accident [Unknown]
  - Mobility decreased [Unknown]
